FAERS Safety Report 5428838-2 (Version None)
Quarter: 2007Q3

REPORT INFORMATION
  Report Type: 
  Country: None (occurrence: None)
  Receive Date: 20070829
  Receipt Date: 20061011
  Transmission Date: 20080115
  Serious: Yes (Other)
  Sender: FDA-Public Use
  Company Number: A0616114A

PATIENT
  Age: 66 Year
  Sex: Female

DRUGS (3)
  1. ACYCLOVIR [Suspect]
     Dosage: 400MG TWICE PER DAY
     Route: 048
     Dates: start: 20040201, end: 20060601
  2. CELEBREX [Concomitant]
  3. ACTONEL [Concomitant]

REACTIONS (3)
  - ALOPECIA [None]
  - ANAEMIA [None]
  - DYSPNOEA [None]
